FAERS Safety Report 5239249-7 (Version None)
Quarter: 2007Q1

REPORT INFORMATION
  Report Type: 
  Country: None (occurrence: None)
  Receive Date: 20061208
  Receipt Date: 20050830
  Transmission Date: 20070707
  Serious: Yes (Other)
  Sender: FDA-Public Use
  Company Number: 2005UW12908

PATIENT
  Age: 76 Year
  Sex: Male
  Weight: 83.914 kg

DRUGS (5)
  1. CRESTOR [Suspect]
     Indication: BLOOD CHOLESTEROL INCREASED
     Dosage: 10 MG PO
     Route: 048
     Dates: start: 20050801, end: 20050801
  2. CRESTOR [Suspect]
     Indication: BLOOD CHOLESTEROL INCREASED
     Dosage: 10 MG PO
     Route: 048
     Dates: start: 20050801, end: 20050801
  3. METFORMIN HCL [Concomitant]
  4. FOLIC ACID [Concomitant]
  5. FOSINOPRIL SODIUM [Concomitant]

REACTIONS (1)
  - RENAL PAIN [None]
